FAERS Safety Report 10328872 (Version 1)
Quarter: 2014Q3

REPORT INFORMATION
  Report Type: Spontaneous
  Country: US (occurrence: None)
  Receive Date: 20140717
  Receipt Date: 20140717
  Transmission Date: 20150326
  Serious: Yes (Other)
  Sender: FDA-Public Use
  Company Number: FK201402721

PATIENT
  Age: 41 Year
  Sex: Female

DRUGS (1)
  1. VANCOMYCIN (MANUFACTURER UNKNOWN) (VANCOMYCIN) (VANCOMYCIN) [Suspect]
     Active Substance: VANCOMYCIN
     Indication: OSTEOMYELITIS ACUTE
     Dosage: 1250 MG, 1 IN 12 HR, INTRAVENOUS ( NOT OTHERWISE SPECIFIED)
     Route: 042

REACTIONS (2)
  - Similar reaction on previous exposure to drug [None]
  - Renal failure acute [None]
